FAERS Safety Report 5400027-7 (Version None)
Quarter: 2007Q3

REPORT INFORMATION
  Report Type: 
  Country: None (occurrence: None)
  Receive Date: 20070730
  Receipt Date: 20070718
  Transmission Date: 20080115
  Serious: Yes (Other)
  Sender: FDA-Public Use
  Company Number: AUWYE042418JUL07

PATIENT
  Sex: Female
  Weight: 105 kg

DRUGS (2)
  1. EFFEXOR [Suspect]
     Indication: DEPRESSION
     Route: 048
     Dates: start: 20050615, end: 20061015
  2. TRAMADOL HCL [Interacting]
     Indication: HEADACHE
     Route: 048
     Dates: start: 20060115, end: 20061015

REACTIONS (4)
  - AGITATION [None]
  - DRUG INEFFECTIVE [None]
  - DRUG INTERACTION [None]
  - SEROTONIN SYNDROME [None]
